FAERS Safety Report 10400943 (Version 1)
Quarter: 2014Q3

REPORT INFORMATION
  Report Type: Spontaneous
  Country: US (occurrence: US)
  Receive Date: 20140821
  Receipt Date: 20140821
  Transmission Date: 20150326
  Serious: No
  Sender: FDA-Public Use
  Company Number: US-GILEAD-2014-0112642

PATIENT
  Age: 54 Year
  Sex: Female
  Weight: 113.38 kg

DRUGS (8)
  1. TEMAZEPAM. [Concomitant]
     Active Substance: TEMAZEPAM
     Dosage: UNK
     Dates: start: 2013
  2. ACYCLOVIR                          /00587301/ [Concomitant]
     Active Substance: ACYCLOVIR
     Dosage: UNK
     Dates: start: 2013
  3. OLYSIO [Suspect]
     Active Substance: SIMEPREVIR
     Indication: HEPATITIS C
     Dosage: 150 MG, QD
     Route: 048
  4. BACTRIM [Concomitant]
     Active Substance: SULFAMETHOXAZOLE\TRIMETHOPRIM
     Dosage: UNK
     Dates: start: 201307
  5. AMLODIPINE [Concomitant]
     Active Substance: AMLODIPINE BESYLATE
     Dosage: UNK
     Dates: start: 2013
  6. SOVALDI [Suspect]
     Active Substance: SOFOSBUVIR
     Indication: HEPATITIS C
     Route: 065
  7. CYCLOSPORIN [Concomitant]
     Active Substance: CYCLOSPORINE
     Dosage: UNK
     Dates: start: 201307
  8. PROMACTA [Concomitant]
     Active Substance: ELTROMBOPAG OLAMINE
     Dosage: UNK
     Dates: start: 201407

REACTIONS (1)
  - Off label use [Unknown]
